FAERS Safety Report 15318740 (Version 1)
Quarter: 2018Q3

REPORT INFORMATION
  Report Type: Spontaneous
  Country: US (occurrence: US)
  Receive Date: 20180818
  Receipt Date: 20180818
  Transmission Date: 20181010
  Serious: Yes (Other)
  Sender: FDA-Public Use
  Company Number: None

PATIENT
  Age: 62 Year
  Sex: Female
  Weight: 65.25 kg

DRUGS (2)
  1. THYROID MEDICATION [Concomitant]
     Active Substance: UNSPECIFIED INGREDIENT
  2. LEVOTHYROXIN 25MCG TAKE ONE AND A HALF, SO 37.5 MCGS [Suspect]
     Active Substance: LEVOTHYROXINE
     Indication: THYROID DISORDER
     Route: 048
     Dates: start: 20080801, end: 20180815

REACTIONS (7)
  - Feeling abnormal [None]
  - Asthenia [None]
  - Malaise [None]
  - Loss of personal independence in daily activities [None]
  - Product use issue [None]
  - Mobility decreased [None]
  - Vomiting [None]

NARRATIVE: CASE EVENT DATE: 20180801
